FAERS Safety Report 5018742-6 (Version None)
Quarter: 2006Q2

REPORT INFORMATION
  Report Type: 
  Country: None (occurrence: None)
  Receive Date: 20060526
  Receipt Date: 20060516
  Transmission Date: 20061013
  Serious: Yes (Hospitalization)
  Sender: FDA-Public Use
  Company Number: 200612768BWH

PATIENT
  Age: 61 Year
  Sex: Male

DRUGS (9)
  1. NEXAVAR [Suspect]
     Indication: METASTATIC RENAL CELL CARCINOMA
     Dosage: 400 MG, BID, ORAL
     Route: 048
     Dates: start: 20051017, end: 20060207
  2. NEXAVAR [Suspect]
     Indication: METASTATIC RENAL CELL CARCINOMA
     Dosage: 400 MG, BID, ORAL
     Route: 048
     Dates: end: 20060303
  3. MULTI-VITAMIN [Concomitant]
  4. COLACE [Concomitant]
  5. OXYCONTIN [Concomitant]
  6. PERCOCET [Concomitant]
  7. SENNA [Concomitant]
  8. ASPIRIN [Concomitant]
  9. MIRALAX [Concomitant]

REACTIONS (30)
  - ABDOMINAL PAIN [None]
  - ATELECTASIS [None]
  - BLOOD ALBUMIN DECREASED [None]
  - BLOOD LACTATE DEHYDROGENASE INCREASED [None]
  - CARDIAC FAILURE CONGESTIVE [None]
  - DIZZINESS [None]
  - DRUG INEFFECTIVE [None]
  - DYSGEUSIA [None]
  - EJECTION FRACTION DECREASED [None]
  - FATIGUE [None]
  - FEELING COLD [None]
  - HYPERHIDROSIS [None]
  - INTERSTITIAL LUNG DISEASE [None]
  - NAUSEA [None]
  - NECROSIS [None]
  - PAIN [None]
  - PAIN IN EXTREMITY [None]
  - PERICARDIAL EFFUSION [None]
  - PLEURAL EFFUSION [None]
  - PNEUMONITIS [None]
  - PULMONARY FIBROSIS [None]
  - RASH [None]
  - SKIN HAEMORRHAGE [None]
  - SPINAL OSTEOARTHRITIS [None]
  - TACHYCARDIA [None]
  - THROMBOCYTHAEMIA [None]
  - THROMBOPHLEBITIS [None]
  - URINARY RETENTION [None]
  - VENOUS PRESSURE JUGULAR INCREASED [None]
  - YELLOW SKIN [None]
